FAERS Safety Report 17054377 (Version 1)
Quarter: 2019Q4

REPORT INFORMATION
  Report Type: Report from Study
  Country: US (occurrence: US)
  Receive Date: 20191120
  Receipt Date: 20191120
  Transmission Date: 20200122
  Serious: Yes (Other)
  Sender: FDA-Public Use
  Company Number: US-UCBSA-2019048350

PATIENT
  Age: 42 Year
  Sex: Female

DRUGS (8)
  1. IBUPROFEN. [Concomitant]
     Active Substance: IBUPROFEN
     Indication: PRODUCT USED FOR UNKNOWN INDICATION
  2. CERTOLIZUMAB PEGOL [Suspect]
     Active Substance: CERTOLIZUMAB PEGOL
     Dosage: UNK, EV 2 MONTHS
  3. CERTOLIZUMAB PEGOL [Suspect]
     Active Substance: CERTOLIZUMAB PEGOL
     Dosage: EVERY 10 WEEKS
  4. CERTOLIZUMAB PEGOL [Suspect]
     Active Substance: CERTOLIZUMAB PEGOL
     Indication: RHEUMATOID ARTHRITIS
     Dosage: 400 MILLIGRAM, MONTHLY (QM)
     Route: 058
  5. VITAMIN D NOS [Concomitant]
     Active Substance: VITAMIN D NOS
     Indication: PRODUCT USED FOR UNKNOWN INDICATION
  6. MTX [METHOTREXATE] [Concomitant]
     Active Substance: METHOTREXATE SODIUM
     Indication: PRODUCT USED FOR UNKNOWN INDICATION
  7. MECLIZINE [Concomitant]
     Active Substance: MECLIZINE HYDROCHLORIDE
     Indication: PRODUCT USED FOR UNKNOWN INDICATION
  8. RESTASIS [Concomitant]
     Active Substance: CYCLOSPORINE
     Indication: DRY EYE

REACTIONS (31)
  - Headache [Unknown]
  - Abdominal pain [Unknown]
  - Pollakiuria [Unknown]
  - Constipation [Unknown]
  - Haematuria [Unknown]
  - Dysphagia [Unknown]
  - Rash [Unknown]
  - Pyrexia [Unknown]
  - Cough [Unknown]
  - Stomatitis [Unknown]
  - Chest pain [Unknown]
  - Dyspnoea [Unknown]
  - Exercise tolerance decreased [Unknown]
  - Raynaud^s phenomenon [Unknown]
  - Melaena [Unknown]
  - Weight decreased [Unknown]
  - Visual impairment [Unknown]
  - Photosensitivity reaction [Unknown]
  - Off label use [Unknown]
  - Night sweats [Unknown]
  - Chills [Unknown]
  - Fatigue [Unknown]
  - Dysuria [Unknown]
  - Sjogren^s syndrome [Unknown]
  - Wheezing [Unknown]
  - Muscular weakness [Unknown]
  - Paraesthesia [Unknown]
  - Haemoptysis [Unknown]
  - Palpitations [Unknown]
  - Alopecia [Unknown]
  - Skin tightness [Unknown]

NARRATIVE: CASE EVENT DATE: 20180108
